FAERS Safety Report 6142039-4 (Version None)
Quarter: 2009Q2

REPORT INFORMATION
  Report Type: 
  Country: None (occurrence: None)
  Receive Date: 20090402
  Receipt Date: 20090327
  Transmission Date: 20091009
  Serious: Yes (Hospitalization)
  Sender: FDA-Public Use
  Company Number: JP-ABBOTT-09P-087-0565157-00

PATIENT
  Sex: Male

DRUGS (5)
  1. KLARICID [Suspect]
     Indication: NASOPHARYNGITIS
     Route: 048
     Dates: start: 20090321, end: 20090324
  2. AMARYL [Suspect]
     Indication: DIABETES MELLITUS
     Route: 048
     Dates: start: 20060101
  3. FASTIC [Concomitant]
     Indication: DIABETES MELLITUS
     Route: 048
     Dates: start: 20060101
  4. ARICEPT [Concomitant]
     Indication: DEMENTIA
     Route: 048
     Dates: start: 20060101
  5. SINGULAIR [Concomitant]
     Indication: HYPERTENSION
     Route: 048
     Dates: start: 20060101

REACTIONS (2)
  - HYPOGLYCAEMIA [None]
  - LOSS OF CONSCIOUSNESS [None]
